FAERS Safety Report 8586527-X (Version None)
Quarter: 2012Q3

REPORT INFORMATION
  Report Type: 
  Country: None (occurrence: None)
  Receive Date: 20120810
  Receipt Date: 20120801
  Transmission Date: 20120928
  Serious: Yes (Other)
  Sender: FDA-Public Use
  Company Number: JP-JNJFOC-20120802211

PATIENT
  Sex: Male
  Weight: 43 kg

DRUGS (15)
  1. RABEPRAZOLE SODIUM [Concomitant]
     Route: 048
  2. MAGMITT [Concomitant]
     Route: 048
  3. SIMPONI [Suspect]
     Route: 058
     Dates: start: 20120427
  4. CLEANAL [Concomitant]
     Route: 048
  5. SIMPONI [Suspect]
     Route: 058
     Dates: start: 20120112
  6. SIMPONI [Suspect]
     Route: 058
     Dates: start: 20120330
  7. YODEL [Concomitant]
     Route: 048
  8. METHOTREXATE [Concomitant]
     Indication: RHEUMATOID ARTHRITIS
     Dates: start: 20111217
  9. UBRETID [Concomitant]
     Route: 048
  10. SIMPONI [Suspect]
     Route: 058
     Dates: start: 20111129
  11. RECALBON [Concomitant]
     Route: 048
  12. SIMPONI [Suspect]
     Indication: RHEUMATOID ARTHRITIS
     Route: 058
     Dates: start: 20120308
  13. FOLIC ACID [Concomitant]
     Indication: RHEUMATOID ARTHRITIS
     Route: 048
  14. SIMPONI [Suspect]
     Route: 058
     Dates: start: 20120209
  15. RHEUMATREX [Concomitant]
     Route: 048

REACTIONS (1)
  - PULMONARY FIBROSIS [None]
